FAERS Safety Report 10582283 (Version 1)
Quarter: 2014Q4

REPORT INFORMATION
  Report Type: Spontaneous
  Country: US (occurrence: US)
  Receive Date: 20141113
  Receipt Date: 20141113
  Transmission Date: 20150529
  Serious: No
  Sender: FDA-Public Use
  Company Number: US-TEVA-521647USA

PATIENT
  Age: 61 Year
  Sex: Female
  Weight: 59.02 kg

DRUGS (3)
  1. CENESTIN [Suspect]
     Active Substance: ESTROGENS, CONJUGATED SYNTHETIC A
     Indication: MENOPAUSE
     Dates: start: 2003
  2. LIVALL [Concomitant]
     Indication: BLOOD CHOLESTEROL INCREASED
  3. LOVAZA [Concomitant]
     Active Substance: OMEGA-3-ACID ETHYL ESTERS
     Indication: BLOOD CHOLESTEROL INCREASED

REACTIONS (2)
  - Hepatic lesion [Not Recovered/Not Resolved]
  - Alopecia [Not Recovered/Not Resolved]

NARRATIVE: CASE EVENT DATE: 2008
